FAERS Safety Report 9199265 (Version 2)
Quarter: 2013Q2

REPORT INFORMATION
  Report Type: Spontaneous
  Country: US (occurrence: None)
  Receive Date: 20130325
  Receipt Date: 20130409
  Transmission Date: 20140414
  Serious: Yes (Hospitalization)
  Sender: FDA-Public Use
  Company Number: 2013US-004567

PATIENT
  Age: 68 Year
  Sex: Male
  Weight: 63 kg

DRUGS (13)
  1. OMONTYS (PEGINESATIDE) SOLUTION FOR INJECTION [Suspect]
     Indication: NEPHROGENIC ANAEMIA
     Dates: start: 20121207, end: 20121207
  2. CALCITROL (CALCIUM CARBONATE, ERGOCALCIFEROL, RETINOL) [Concomitant]
  3. IMODIUM A-D (LOPERAMIDE HYDROCHLORIDE) [Concomitant]
  4. FOLIC ACID (FOLIC ACID) [Concomitant]
  5. VITAMIN B COMPLEX (VITAMIN B COMPLEX) [Concomitant]
  6. NEPHROVITE (ASCORBIC ACID, BIOTIN, CALCIUM PANTOTHENATE, CYANOCOBALAMIN, FOLIC ACID, NICOTINAMIDE, PYRIDOXINE HYDROCHLORIDE, RIBOFLAVIN, THIAMINE HYDROCHLORIDE) [Concomitant]
  7. LANTUS (INSULINE GLARGINE) [Concomitant]
  8. LOPRESSOR (METOPROLOL TARTRATE) [Concomitant]
  9. ADALAT (NIFEDIPINE) [Concomitant]
  10. RENVELA (SEVELAMER CARBONATE) [Concomitant]
  11. ZOCOR (SIMVASTATIN) [Concomitant]
  12. HYTRIN (TERAZOSIN HYDROCHLORIDE) [Concomitant]
  13. HYPATITIS B VACCINE (HEPATITIS B VACCINE) [Concomitant]

REACTIONS (13)
  - Transient ischaemic attack [None]
  - Anxiety [None]
  - Feeling hot [None]
  - Muscular weakness [None]
  - Hyponatraemia [None]
  - Asymptomatic bacteriuria [None]
  - Muscular weakness [None]
  - Hypoaesthesia [None]
  - Arthralgia [None]
  - Blood pressure decreased [None]
  - Cerebral infarction [None]
  - Feeling cold [None]
  - Paraesthesia [None]
